FAERS Safety Report 19502094 (Version 1)
Quarter: 2021Q3

REPORT INFORMATION
  Report Type: Report from Study
  Country: US (occurrence: US)
  Receive Date: 20210707
  Receipt Date: 20210707
  Transmission Date: 20211014
  Serious: Yes (Other)
  Sender: FDA-Public Use
  Company Number: US-GILEAD-2021-0539340

PATIENT
  Sex: Male

DRUGS (10)
  1. BETHKIS [Concomitant]
     Active Substance: TOBRAMYCIN
     Dosage: BETHKIS 300 MG/4ML AMPUL?NEB
  2. AZTREONAM LYSINE [Suspect]
     Active Substance: AZTREONAM LYSINE
     Indication: CYSTIC FIBROSIS LUNG
     Dosage: 1 DOSAGE FORM, TID, FOR 28 DAYS ON AND 28 DAYS OFF
     Route: 055
  3. AZELASTINE HYDROCHLORIDE. [Concomitant]
     Active Substance: AZELASTINE HYDROCHLORIDE
     Dosage: AZELASTINE HCL 0.05 % DROPS
  4. ADVAIR HFA [Concomitant]
     Active Substance: FLUTICASONE PROPIONATE\SALMETEROL XINAFOATE
     Dosage: ADVAIR HFA 115?21MCG HFA AER AD
  5. TRIKAFTA [Concomitant]
     Active Substance: ELEXACAFTOR\IVACAFTOR\TEZACAFTOR
     Dosage: 100/50/75 MG AND 150 MG TAB
  6. PULMICORT TURBUHALER [Concomitant]
     Active Substance: BUDESONIDE
     Dosage: PULMICORT 0.25MG/2ML AMPUL?NEB
  7. E?VITAMIN [Concomitant]
     Dosage: VITAMIN E 1000 UNIT CAPSULE
  8. HUMALOG [Concomitant]
     Active Substance: INSULIN LISPRO
  9. CREON [Concomitant]
     Active Substance: PANCRELIPASE AMYLASE\PANCRELIPASE LIPASE\PANCRELIPASE PROTEASE
     Dosage: CREON 12K?38K?60 CAPSULE DR
  10. ALBUTEROL SULFATE. [Concomitant]
     Active Substance: ALBUTEROL SULFATE
     Dosage: ALBUTEROL SULFATE 0.63MG/3ML VIAL?NEB

REACTIONS (1)
  - Diabetes mellitus [Not Recovered/Not Resolved]
